FAERS Safety Report 6354558-6 (Version None)
Quarter: 2009Q3

REPORT INFORMATION
  Report Type: 
  Country: None (occurrence: None)
  Receive Date: 20090909
  Receipt Date: 20090826
  Transmission Date: 20100115
  Serious: Yes (Other)
  Sender: FDA-Public Use
  Company Number: 001650

PATIENT
  Sex: Male

DRUGS (4)
  1. VIMPAT [Suspect]
     Dosage: SEE IMAGE
     Dates: start: 20090701
  2. ERGENYL CHRONO [Concomitant]
  3. LUMIMAL /00023201/ [Concomitant]
  4. FRISIUM [Concomitant]

REACTIONS (5)
  - APNOEA [None]
  - CONSTIPATION [None]
  - CONVULSION [None]
  - RESPIRATORY FAILURE [None]
  - SOMNOLENCE [None]
